FAERS Safety Report 12271156 (Version 4)
Quarter: 2016Q4

REPORT INFORMATION
  Report Type: Spontaneous
  Country: US (occurrence: US)
  Receive Date: 20160415
  Receipt Date: 20161115
  Transmission Date: 20170207
  Serious: No
  Sender: FDA-Public Use
  Company Number: US-GLAXOSMITHKLINE-US2016051238

PATIENT
  Age: 85 Year
  Sex: Female

DRUGS (1)
  1. PREVACID 24 HR [Suspect]
     Active Substance: LANSOPRAZOLE
     Indication: DYSPEPSIA
     Dosage: 1 DF, QD, USE EVERYDAY
     Route: 048

REACTIONS (3)
  - Incorrect drug administration duration [Unknown]
  - Product quality issue [Unknown]
  - Therapeutic response unexpected [Unknown]
